FAERS Safety Report 4847323-X (Version None)
Quarter: 2005Q4

REPORT INFORMATION
  Report Type: 
  Country: None (occurrence: None)
  Receive Date: 20051205
  Receipt Date: 20051205
  Transmission Date: 20060501
  Serious: No
  Sender: FDA-Public Use
  Company Number: None

PATIENT
  Age: 38 Year
  Sex: Female
  Weight: 54.4316 kg

DRUGS (1)
  1. LAMISIL [Suspect]
     Indication: ONYCHOMYCOSIS
     Dosage: 250MG  DAILY  PO
     Route: 048
     Dates: start: 20050904, end: 20051104

REACTIONS (1)
  - DIARRHOEA [None]
